FAERS Safety Report 21180017 (Version 1)
Quarter: 2022Q3

REPORT INFORMATION
  Report Type: Spontaneous
  Country: CA (occurrence: CA)
  Receive Date: 20220805
  Receipt Date: 20220805
  Transmission Date: 20221027
  Serious: Yes (Other)
  Sender: FDA-Public Use
  Company Number: CA-GILEAD-2022-0592583

PATIENT
  Age: 35 Year
  Sex: Female

DRUGS (3)
  1. TENOFOVIR ALAFENAMIDE [Suspect]
     Active Substance: TENOFOVIR ALAFENAMIDE
     Indication: Hepatitis B
     Route: 065
  2. INFLECTRA [Concomitant]
     Active Substance: INFLIXIMAB-DYYB
     Indication: Colitis ulcerative
  3. ENTIVIO [Concomitant]
     Indication: Colitis ulcerative

REACTIONS (3)
  - Hepatitis B [Unknown]
  - Infusion related reaction [Recovered/Resolved]
  - Drug level below therapeutic [Unknown]
